FAERS Safety Report 23729216 (Version 1)
Quarter: 2024Q2

REPORT INFORMATION
  Report Type: Report from Study
  Country: US (occurrence: US)
  Receive Date: 20240410
  Receipt Date: 20240410
  Transmission Date: 20240716
  Serious: No
  Sender: FDA-Public Use
  Company Number: US-MELINTA THERAPEUTICS, LLC-US-MLNT-24-00172

PATIENT
  Sex: Male

DRUGS (5)
  1. REZZAYO [Suspect]
     Active Substance: REZAFUNGIN
     Indication: Emphysema
     Dosage: NOT PROVIDED, UNK
     Route: 017
  2. REZZAYO [Suspect]
     Active Substance: REZAFUNGIN
     Indication: Fungal infection
  3. REZZAYO [Suspect]
     Active Substance: REZAFUNGIN
     Indication: Nocardiosis
  4. REZZAYO [Suspect]
     Active Substance: REZAFUNGIN
     Indication: Aspergillus infection
  5. REZZAYO [Suspect]
     Active Substance: REZAFUNGIN
     Indication: Pulmonary imaging procedure abnormal

REACTIONS (2)
  - Product prescribing issue [Unknown]
  - No adverse event [Unknown]
